FAERS Safety Report 4440808-X (Version None)
Quarter: 2004Q3

REPORT INFORMATION
  Report Type: 
  Country: None (occurrence: None)
  Receive Date: 20040827
  Receipt Date: 20030924
  Transmission Date: 20050211
  Serious: Yes (Hospitalization)
  Sender: FDA-Public Use
  Company Number: 001-0719-M0100390

PATIENT
  Age: 68 Year
  Sex: Female
  Weight: 67.1324 kg

DRUGS (9)
  1. LOPID [Suspect]
     Indication: HYPERCHOLESTEROLAEMIA
     Dosage: ORAL
     Route: 048
     Dates: end: 20010329
  2. CERIVASTATIN SODIUM (CERIVASTATIN SODIUM) [Suspect]
     Indication: HYPERLIPIDAEMIA
     Dosage: ORAL
     Route: 048
     Dates: start: 20000401
  3. CONJUGATED ESTROGEN [Concomitant]
  4. BENAZEPRIL HCL [Concomitant]
  5. TOLTERODINE TARTRATE [Concomitant]
  6. BACTRIM [Concomitant]
  7. VICODIN [Concomitant]
  8. GABAPENTIN [Concomitant]
  9. PHENAZOPYRIDINE HCL TAB [Concomitant]

REACTIONS (8)
  - ANXIETY [None]
  - HEADACHE [None]
  - HYPERCHOLESTEROLAEMIA [None]
  - HYPERTENSION [None]
  - OVERDOSE [None]
  - RHABDOMYOLYSIS [None]
  - STAPHYLOCOCCAL INFECTION [None]
  - URINARY TRACT INFECTION [None]
